FAERS Safety Report 23424123 (Version 5)
Quarter: 2025Q3

REPORT INFORMATION
  Report Type: Spontaneous
  Country: EU (occurrence: EU)
  Receive Date: 20240120
  Receipt Date: 20250806
  Transmission Date: 20251020
  Serious: Yes (Other)
  Sender: AUROBINDO
  Company Number: EU-AUROBINDO-AUR-APL-2024-002013

PATIENT
  Age: 55 Year
  Sex: Female

DRUGS (8)
  1. LETROZOLE [Interacting]
     Active Substance: LETROZOLE
     Indication: Metastases to pelvis
     Route: 065
     Dates: start: 202011, end: 202011
  2. LETROZOLE [Interacting]
     Active Substance: LETROZOLE
     Indication: Breast cancer metastatic
  3. ZOLEDRONIC ACID [Interacting]
     Active Substance: ZOLEDRONIC ACID
     Indication: Metastases to pelvis
     Route: 065
     Dates: start: 202011, end: 202011
  4. ZOLEDRONIC ACID [Interacting]
     Active Substance: ZOLEDRONIC ACID
     Indication: Breast cancer metastatic
  5. RIBOCICLIB [Interacting]
     Active Substance: RIBOCICLIB
     Indication: Breast cancer metastatic
     Dosage: UNK
     Route: 065
     Dates: start: 202011, end: 202011
  6. RIBOCICLIB [Interacting]
     Active Substance: RIBOCICLIB
     Indication: Metastases to pelvis
  7. FULVESTRANT [Concomitant]
     Active Substance: FULVESTRANT
     Indication: Product used for unknown indication
     Route: 065
  8. TAMOXIFEN [Concomitant]
     Active Substance: TAMOXIFEN
     Indication: Product used for unknown indication
     Route: 065

REACTIONS (6)
  - Liver injury [Unknown]
  - Hepatotoxicity [Unknown]
  - Drug-induced liver injury [Unknown]
  - Drug interaction [Unknown]
  - Vitiligo [Unknown]
  - Off label use [Unknown]

NARRATIVE: CASE EVENT DATE: 20201101
